FAERS Safety Report 8169724-7 (Version None)
Quarter: 2012Q1

REPORT INFORMATION
  Report Type: 
  Country: None (occurrence: None)
  Receive Date: 20120228
  Receipt Date: 20120216
  Transmission Date: 20120608
  Serious: Yes (Hospitalization, Other)
  Sender: FDA-Public Use
  Company Number: DE-JNJFOC-20120208568

PATIENT
  Age: 27 Year
  Sex: Female
  Weight: 63 kg

DRUGS (6)
  1. AZATHIOPRINE [Suspect]
     Route: 048
     Dates: start: 20080726
  2. PREDNISOLONE [Suspect]
     Indication: CROHN'S DISEASE
     Route: 048
  3. REMICADE [Suspect]
     Indication: CROHN'S DISEASE
     Route: 042
  4. AZATHIOPRINE [Suspect]
     Indication: CROHN'S DISEASE
     Route: 048
  5. METHYLPREDNISOLONE [Suspect]
     Indication: CROHN'S DISEASE
     Route: 065
     Dates: start: 20090126, end: 20090205
  6. FEMIBION [Concomitant]
     Indication: PROPHYLAXIS OF NEURAL TUBE DEFECT
     Dosage: 0.4MG/D
     Route: 048

REACTIONS (7)
  - HELLP SYNDROME [None]
  - CONDITION AGGRAVATED [None]
  - PREMATURE SEPARATION OF PLACENTA [None]
  - PREMATURE LABOUR [None]
  - CAESAREAN SECTION [None]
  - CROHN'S DISEASE [None]
  - MATERNAL EXPOSURE DURING PREGNANCY [None]
